FAERS Safety Report 8300266 (Version 3)
Quarter: 2014Q3

REPORT INFORMATION
  Report Type: Spontaneous
  Country: US (occurrence: US)
  Receive Date: 20111219
  Receipt Date: 20140805
  Transmission Date: 20150326
  Serious: Yes (Other)
  Sender: FDA-Public Use
  Company Number: US-ASTRAZENECA-2011SE06438

PATIENT
  Age: 63 Year
  Sex: Male
  Weight: 117.9 kg

DRUGS (28)
  1. MAG OXIDE [Concomitant]
     Dates: start: 2004
  2. LOSARTAN [Concomitant]
     Active Substance: LOSARTAN
     Indication: CARDIAC DISORDER
     Dates: start: 2013
  3. COUMADIN [Concomitant]
     Active Substance: WARFARIN SODIUM
     Indication: ANTICOAGULANT THERAPY
     Dosage: 7.5 MG
     Dates: start: 2004
  4. VITAMIN B12 [Concomitant]
     Active Substance: CYANOCOBALAMIN
     Dosage: MONTH
  5. NORVASC [Concomitant]
     Active Substance: AMLODIPINE BESYLATE
  6. PLAVIX [Concomitant]
     Active Substance: CLOPIDOGREL BISULFATE
     Indication: THROMBOSIS PROPHYLAXIS
     Dates: start: 2004
  7. CRESTOR [Suspect]
     Active Substance: ROSUVASTATIN CALCIUM
     Indication: BLOOD CHOLESTEROL INCREASED
     Route: 048
     Dates: start: 2005
  8. CARVEDILOL. [Concomitant]
     Active Substance: CARVEDILOL
     Dates: start: 2004
  9. COMBIVENT [Concomitant]
     Active Substance: ALBUTEROL SULFATE\IPRATROPIUM BROMIDE
     Indication: RESPIRATORY DISORDER
     Dosage: 2 PUFFS OF 240 MG DAILY
     Route: 055
     Dates: start: 2013
  10. LASIX [Concomitant]
     Active Substance: FUROSEMIDE
     Indication: SWELLING
     Dates: start: 2004
  11. ISOSORB MONO ER [Concomitant]
     Indication: CHEST PAIN
     Dates: start: 2007
  12. DIOVAN [Concomitant]
     Active Substance: VALSARTAN
  13. CRESTOR [Suspect]
     Active Substance: ROSUVASTATIN CALCIUM
     Indication: HYPERLIPIDAEMIA
     Route: 048
     Dates: start: 2005
  14. INSPIRA [Concomitant]
     Indication: DIURETIC THERAPY
     Dates: start: 2014
  15. CLONIDINE. [Concomitant]
     Active Substance: CLONIDINE
     Indication: BLOOD PRESSURE FLUCTUATION
     Dates: start: 2012
  16. POTASSIUM [Concomitant]
     Active Substance: POTASSIUM
     Indication: MINERAL SUPPLEMENTATION
     Dates: start: 2004
  17. TIKOSYN [Concomitant]
     Active Substance: DOFETILIDE
     Indication: ARRHYTHMIA
  18. ASPIRIN. [Concomitant]
     Active Substance: ASPIRIN
  19. ULORIC [Concomitant]
     Active Substance: FEBUXOSTAT
     Indication: GOUT
     Dates: start: 2007
  20. FOLIC ACID. [Concomitant]
     Active Substance: FOLIC ACID
  21. IPRATROPIUM BROMIDE. [Concomitant]
     Active Substance: IPRATROPIUM BROMIDE
     Indication: WHEEZING
     Route: 055
     Dates: start: 2009
  22. PROVENTIL [Concomitant]
     Active Substance: ALBUTEROL
  23. LEVOTHYROXINE [Concomitant]
     Active Substance: LEVOTHYROXINE
     Indication: THYROID DISORDER
     Dosage: 75 MCG DAILY
  24. VITAMIN D [Concomitant]
     Active Substance: CHOLECALCIFEROL
     Dosage: 50000 UNITS
  25. NITROQUICK [Concomitant]
     Active Substance: NITROGLYCERIN
     Indication: CHEST DISCOMFORT
     Dates: start: 2004
  26. AMIODARONE [Concomitant]
     Active Substance: AMIODARONE
     Indication: ARRHYTHMIA
     Dosage: UNK UNK
     Dates: start: 2007, end: 2009
  27. TIKOSYN [Concomitant]
     Active Substance: DOFETILIDE
     Indication: HEART RATE ABNORMAL
  28. COLCHICINE. [Concomitant]
     Active Substance: COLCHICINE
     Indication: GOUT
     Dates: start: 2007

REACTIONS (22)
  - Multi-organ disorder [Recovering/Resolving]
  - Hypotension [Unknown]
  - Dizziness [Unknown]
  - Malignant melanoma [Not Recovered/Not Resolved]
  - Blood folate decreased [Unknown]
  - Amnesia [Not Recovered/Not Resolved]
  - Weight increased [Not Recovered/Not Resolved]
  - Gynaecomastia [Recovered/Resolved]
  - Myocardial infarction [Unknown]
  - Sleep apnoea syndrome [Unknown]
  - Dyspnoea [Unknown]
  - Electrolyte imbalance [Unknown]
  - Lung neoplasm [Not Recovered/Not Resolved]
  - Balance disorder [Unknown]
  - Fall [Unknown]
  - Skin cancer [Unknown]
  - Lung disorder [Not Recovered/Not Resolved]
  - Arrhythmia [Unknown]
  - Blood pressure increased [Unknown]
  - Vitamin B12 decreased [Not Recovered/Not Resolved]
  - Renal disorder [Recovering/Resolving]
  - Mobility decreased [Unknown]

NARRATIVE: CASE EVENT DATE: 2006
